FAERS Safety Report 5043602-4 (Version None)
Quarter: 2006Q2

REPORT INFORMATION
  Report Type: 
  Country: None (occurrence: None)
  Receive Date: 20060628
  Receipt Date: 20060612
  Transmission Date: 20061013
  Serious: Yes (Other)
  Sender: FDA-Public Use
  Company Number: ENTC2006-0170

PATIENT
  Age: 77 Year
  Sex: Male

DRUGS (3)
  1. STALEVO 100 [Suspect]
     Indication: PARKINSON'S DISEASE
     Dosage: ORAL
     Route: 048
  2. TRIVASTAL [Concomitant]
  3. DEPRENYL [Concomitant]

REACTIONS (1)
  - GLAUCOMA [None]
